FAERS Safety Report 5765901-0 (Version None)
Quarter: 2008Q2

REPORT INFORMATION
  Report Type: 
  Country: None (occurrence: None)
  Receive Date: 20080609
  Receipt Date: 20080416
  Transmission Date: 20081010
  Serious: No
  Sender: FDA-Public Use
  Company Number: 002#2#2007-00358

PATIENT
  Age: 82 Year
  Sex: Male
  Weight: 74.8435 kg

DRUGS (19)
  1. NEUPRO [Suspect]
     Indication: PARKINSON'S DISEASE
     Dosage: 2MG/24H,1 IN 1 D,TRANSDERMAL ; 4MG/24H,1 IN 1 D,TRANSDERMAL ; 6MG/24H,1 IN 1 D,TRANSDERMAL
     Route: 062
     Dates: start: 20070101, end: 20070101
  2. NEUPRO [Suspect]
     Indication: PARKINSON'S DISEASE
     Dosage: 2MG/24H,1 IN 1 D,TRANSDERMAL ; 4MG/24H,1 IN 1 D,TRANSDERMAL ; 6MG/24H,1 IN 1 D,TRANSDERMAL
     Route: 062
     Dates: start: 20070901
  3. NEUPRO [Suspect]
     Indication: PARKINSON'S DISEASE
     Dosage: 2MG/24H,1 IN 1 D,TRANSDERMAL ; 4MG/24H,1 IN 1 D,TRANSDERMAL ; 6MG/24H,1 IN 1 D,TRANSDERMAL
     Route: 062
     Dates: start: 20071101
  4. SINEMET [Concomitant]
  5. SINEMET CR [Concomitant]
  6. ALLOPURINOL [Concomitant]
  7. ATENOLOL [Concomitant]
  8. FOLTX [Concomitant]
  9. VESICARE [Concomitant]
  10. NORVASC [Concomitant]
  11. LEXAPRO [Concomitant]
  12. FOSAMAX [Concomitant]
  13. CELEBREX [Concomitant]
  14. ALLEGRA [Concomitant]
  15. FLONASE [Concomitant]
  16. ASPIRIN [Concomitant]
  17. MULTIVITAMIN W/O IRON [Concomitant]
  18. LOVAZA [Concomitant]
  19. CALCIUM W/ D1 + K1 [Concomitant]

REACTIONS (4)
  - APPLICATION SITE ERYTHEMA [None]
  - APPLICATION SITE PRURITUS [None]
  - APPLICATION SITE REACTION [None]
  - RASH [None]
